FAERS Safety Report 19509788 (Version 1)
Quarter: 2021Q3

REPORT INFORMATION
  Report Type: Report from Study
  Country: US (occurrence: US)
  Receive Date: 20210708
  Receipt Date: 20210708
  Transmission Date: 20211014
  Serious: Yes (Hospitalization)
  Sender: FDA-Public Use
  Company Number: US-PFIZER INC-2021808979

PATIENT
  Sex: Female
  Weight: 120.6 kg

DRUGS (7)
  1. CYCLOPHOSPHAMIDE. [Suspect]
     Active Substance: CYCLOPHOSPHAMIDE
     Dosage: UNK, CYCLIC
     Dates: start: 20200210
  2. DOXORUBICIN HCL [Suspect]
     Active Substance: DOXORUBICIN HYDROCHLORIDE
     Dosage: UNK, CYCLIC
     Dates: start: 20200109
  3. VINCRISTINE SULFATE. [Suspect]
     Active Substance: VINCRISTINE SULFATE
     Dosage: UNK UNK, CYCLIC
     Dates: start: 20200109, end: 20200312
  4. ONCASPAR [Suspect]
     Active Substance: PEGASPARGASE
     Dosage: UNK UNK, CYCLIC
     Dates: start: 20200114
  5. CYTARABINE. [Suspect]
     Active Substance: CYTARABINE
     Dosage: UNK UNK, CYCLIC
     Dates: start: 20200210
  6. METHOTREXATE SODIUM. [Suspect]
     Active Substance: METHOTREXATE SODIUM
     Dosage: UNK UNK, CYCLIC
     Dates: start: 20200109
  7. RITUXIMAB. [Suspect]
     Active Substance: RITUXIMAB
     Dosage: UNK UNK, CYCLIC
     Dates: start: 20200109

REACTIONS (1)
  - Febrile neutropenia [Recovered/Resolved with Sequelae]

NARRATIVE: CASE EVENT DATE: 20200222
